FAERS Safety Report 24139940 (Version 1)
Quarter: 2024Q3

REPORT INFORMATION
  Report Type: Spontaneous
  Country: US (occurrence: US)
  Receive Date: 20240726
  Receipt Date: 20240726
  Transmission Date: 20241016
  Serious: No
  Sender: TEVA
  Company Number: US-TEVA-VS-3221826

PATIENT
  Age: 77 Year
  Sex: Female

DRUGS (3)
  1. HYDROCHLOROTHIAZIDE [Suspect]
     Active Substance: HYDROCHLOROTHIAZIDE
     Indication: Peripheral swelling
     Route: 065
  2. REMODULIN [Suspect]
     Active Substance: TREPROSTINIL
     Indication: Pulmonary arterial hypertension
     Dosage: 0.088  G/KG
     Route: 041
     Dates: start: 2021
  3. BUMETANIDE [Suspect]
     Active Substance: BUMETANIDE
     Indication: Peripheral swelling
     Route: 065

REACTIONS (3)
  - Fatigue [Unknown]
  - Drug ineffective [Unknown]
  - Dyspnoea exertional [Unknown]

NARRATIVE: CASE EVENT DATE: 20240101
